FAERS Safety Report 10183892 (Version 3)
Quarter: 2014Q2

REPORT INFORMATION
  Report Type: Spontaneous
  Country: CA (occurrence: CA)
  Receive Date: 20140520
  Receipt Date: 20140604
  Transmission Date: 20141212
  Serious: Yes (Death, Life-Threatening, Hospitalization, Other)
  Sender: FDA-Public Use
  Company Number: CA-ROCHE-1399086

PATIENT
  Sex: Female
  Weight: 49.94 kg

DRUGS (1)
  1. HERCEPTIN [Suspect]
     Indication: GASTROINTESTINAL CARCINOMA
     Route: 042
     Dates: start: 201309, end: 201312

REACTIONS (4)
  - Malignant neoplasm progression [Fatal]
  - General physical health deterioration [Unknown]
  - Dehydration [Unknown]
  - Weight decreased [Not Recovered/Not Resolved]
